FAERS Safety Report 5238920-0 (Version None)
Quarter: 2007Q1

REPORT INFORMATION
  Report Type: 
  Country: None (occurrence: None)
  Receive Date: 20070215
  Receipt Date: 20070206
  Transmission Date: 20070707
  Serious: Yes (Hospitalization)
  Sender: FDA-Public Use
  Company Number: JP-MERCK-0702USA00370

PATIENT
  Age: 82 Year
  Sex: Female

DRUGS (3)
  1. FOSAMAX [Suspect]
     Indication: OSTEOPOROSIS
     Route: 048
     Dates: start: 20061102, end: 20061208
  2. FOSAMAX [Suspect]
     Route: 048
     Dates: start: 20060202, end: 20060216
  3. INDOMETHACIN [Concomitant]
     Route: 065

REACTIONS (1)
  - HEMIPLEGIA [None]
